FAERS Safety Report 11430014 (Version 2)
Quarter: 2015Q3

REPORT INFORMATION
  Report Type: Report from Study
  Country: US (occurrence: US)
  Receive Date: 20150828
  Receipt Date: 20150904
  Transmission Date: 20151125
  Serious: No
  Sender: FDA-Public Use
  Company Number: PHEH2014US017791

PATIENT
  Sex: Male

DRUGS (2)
  1. CLOZARIL [Suspect]
     Active Substance: CLOZAPINE
     Indication: OFF LABEL USE
     Dosage: 100 MG, UNK
     Route: 048
  2. TRILEPTAL [Suspect]
     Active Substance: OXCARBAZEPINE
     Indication: OFF LABEL USE
     Dosage: UNK UKN, UNK
     Route: 048

REACTIONS (1)
  - Schizophrenia, paranoid type [Unknown]
